FAERS Safety Report 10178511 (Version 1)
Quarter: 2014Q2

REPORT INFORMATION
  Report Type: Spontaneous
  Country: US (occurrence: US)
  Receive Date: 20140519
  Receipt Date: 20140519
  Transmission Date: 20141212
  Serious: Yes (Hospitalization)
  Sender: FDA-Public Use
  Company Number: US-BAYER-2014-070923

PATIENT
  Age: 24 Year
  Sex: Female
  Weight: 68.03 kg

DRUGS (11)
  1. YASMIN [Suspect]
  2. PROAIR HFA [Concomitant]
     Dosage: 2 PUFFS Q 4-6 H (INTERPRETED AS HOURS) PRN (INTERPRETED AS AS NEEDED
     Dates: start: 20080630
  3. PROAIR HFA [Concomitant]
     Dosage: 1 DAILY
     Dates: start: 20080730, end: 20080929
  4. FEXOFENADINE [Concomitant]
     Indication: MULTIPLE ALLERGIES
     Dosage: 180 MG, TABLETS, 1 D (INTERPRETED AS DAILY)
     Route: 048
     Dates: start: 20080630
  5. NASACORT [Concomitant]
     Dosage: SPRAY ONCE IEN (INTERPRETED AS IN EACH NOSTRIL) BID
     Dates: start: 20080630
  6. NASACORT [Concomitant]
     Dosage: 1 SPRAY BILATERALLY DAILY
     Dates: start: 20080730, end: 20080929
  7. CLONAZEPAM [Concomitant]
     Dosage: 0.5 MG, TAB QHS
     Route: 048
     Dates: start: 20080630
  8. CLONAZEPAM [Concomitant]
     Dosage: 1 MG, QHS
     Dates: start: 20080806
  9. KEPPRA [Concomitant]
     Dosage: 500 MG, TABLETS, 1 T (INTERPRETED AS TABLET) QHS
     Route: 048
     Dates: start: 20080905
  10. KEPPRA [Concomitant]
     Dosage: 500 MG, Q.H.S. FOR ONE WEEK THEN INCREASE TO ONE TABLET B.I.D.
     Route: 048
     Dates: start: 20080905, end: 20080929
  11. ALBUTEROL [Concomitant]
     Dosage: 2 PUFFS AS NEEDED
     Dates: start: 20080929

REACTIONS (2)
  - Deep vein thrombosis [Recovered/Resolved]
  - Pulmonary embolism [Recovered/Resolved]
